FAERS Safety Report 6389211-6 (Version None)
Quarter: 2009Q4

REPORT INFORMATION
  Report Type: 
  Country: None (occurrence: None)
  Receive Date: 20091006
  Receipt Date: 20090923
  Transmission Date: 20100525
  Serious: Yes (Other)
  Sender: FDA-Public Use
  Company Number: PHEH2009US11660

PATIENT
  Sex: Female

DRUGS (7)
  1. FEMARA [Suspect]
  2. XANAX [Concomitant]
  3. LEVOTHYROXINE SODIUM [Concomitant]
  4. COMBIGAN [Concomitant]
  5. FOSAMAX [Concomitant]
  6. TRAZODONE [Concomitant]
  7. ATENOLOL [Concomitant]

REACTIONS (5)
  - ARTHRALGIA [None]
  - DRUG HYPERSENSITIVITY [None]
  - NEUROPATHY PERIPHERAL [None]
  - PAIN [None]
  - PAIN IN EXTREMITY [None]
